FAERS Safety Report 13660447 (Version 1)
Quarter: 2017Q2

REPORT INFORMATION
  Report Type: Spontaneous
  Country: CA (occurrence: US)
  Receive Date: 20170615
  Receipt Date: 20170615
  Transmission Date: 20170830
  Serious: Yes (Life-Threatening, Hospitalization)
  Sender: FDA-Public Use
  Company Number: None

PATIENT
  Age: 32 Year
  Sex: Female
  Weight: 95 kg

DRUGS (1)
  1. CANAGLIFLOZIN [Suspect]
     Active Substance: CANAGLIFLOZIN
     Indication: BLOOD GLUCOSE INCREASED
     Dates: start: 20150604, end: 20170602

REACTIONS (5)
  - Blood glucose increased [None]
  - Dyspnoea [None]
  - Tachypnoea [None]
  - Kussmaul respiration [None]
  - Chest discomfort [None]

NARRATIVE: CASE EVENT DATE: 20170602
